FAERS Safety Report 4387704-4 (Version None)
Quarter: 2004Q2

REPORT INFORMATION
  Report Type: 
  Country: None (occurrence: None)
  Receive Date: 20040630
  Receipt Date: 20040619
  Transmission Date: 20050107
  Serious: Yes (Hospitalization, Disabling)
  Sender: FDA-Public Use
  Company Number: US-MERCK-0406USA01885

PATIENT
  Age: 78 Year
  Sex: Female

DRUGS (2)
  1. FOSAMAX [Suspect]
     Indication: OSTEOPOROSIS
     Route: 048
     Dates: start: 20020601, end: 20040601
  2. VIOXX [Concomitant]
     Indication: PAIN
     Route: 048

REACTIONS (10)
  - ABDOMINAL ADHESIONS [None]
  - ABDOMINAL PAIN UPPER [None]
  - DYSPEPSIA [None]
  - GASTRITIS [None]
  - MALLORY-WEISS SYNDROME [None]
  - OESOPHAGITIS [None]
  - POSTOPERATIVE ADHESION [None]
  - SMALL INTESTINAL OBSTRUCTION [None]
  - STOMACH DISCOMFORT [None]
  - VOMITING PROJECTILE [None]
